FAERS Safety Report 9999338 (Version 1)
Quarter: 2014Q1

REPORT INFORMATION
  Report Type: Spontaneous
  Country: JP (occurrence: JP)
  Receive Date: 20140312
  Receipt Date: 20140312
  Transmission Date: 20141002
  Serious: Yes (Other)
  Sender: FDA-Public Use
  Company Number: 2014SP001328

PATIENT
  Age: 46 Year
  Sex: Female

DRUGS (5)
  1. CISPLATIN [Suspect]
     Indication: ENDOMETRIAL CANCER
     Route: 065
  2. IRINOTECAN [Suspect]
     Indication: ENDOMETRIAL CANCER
     Route: 065
  3. PACLITAXEL [Suspect]
     Indication: ENDOMETRIAL CANCER
     Route: 065
  4. CARBOPLATIN [Suspect]
     Indication: ENDOMETRIAL CANCER
     Route: 065
  5. DOCETAXEL [Suspect]
     Indication: ENDOMETRIAL CANCER

REACTIONS (3)
  - Second primary malignancy [Unknown]
  - Acute biphenotypic leukaemia [Unknown]
  - Off label use [Unknown]
